FAERS Safety Report 6892648-X (Version None)
Quarter: 2010Q3

REPORT INFORMATION
  Report Type: 
  Country: None (occurrence: None)
  Receive Date: 20100731
  Receipt Date: 20080812
  Transmission Date: 20110219
  Serious: No
  Sender: FDA-Public Use
  Company Number: US-PFIZER INC-2008067613

PATIENT
  Sex: Male
  Weight: 86.3 kg

DRUGS (2)
  1. NEURONTIN [Suspect]
     Indication: MULTIPLE SCLEROSIS
     Dates: start: 20000101
  2. BACLOFEN [Concomitant]

REACTIONS (2)
  - BURNING SENSATION [None]
  - DRUG INEFFECTIVE [None]
